FAERS Safety Report 11139883 (Version 1)
Quarter: 2015Q2

REPORT INFORMATION
  Report Type: Spontaneous
  Country: US (occurrence: US)
  Receive Date: 20150527
  Receipt Date: 20150527
  Transmission Date: 20150821
  Serious: No
  Sender: FDA-Public Use
  Company Number: US-PFIZER INC-2015174383

PATIENT
  Age: 73 Year
  Sex: Female

DRUGS (1)
  1. LYRICA [Suspect]
     Active Substance: PREGABALIN
     Indication: ULNAR NERVE INJURY
     Dosage: 100 MG, 3X/DAY
     Dates: start: 201404, end: 20150331

REACTIONS (2)
  - Peripheral swelling [Unknown]
  - Joint swelling [Unknown]
